FAERS Safety Report 12714483 (Version 1)
Quarter: 2016Q3

REPORT INFORMATION
  Report Type: Spontaneous
  Country: US (occurrence: US)
  Receive Date: 20160905
  Receipt Date: 20160905
  Transmission Date: 20161109
  Serious: No
  Sender: FDA-Public Use
  Company Number: US-JAZZ-2016-US-008674

PATIENT
  Sex: Female

DRUGS (29)
  1. VITAMIN B12 [Concomitant]
     Active Substance: CYANOCOBALAMIN
  2. VICOPROFEN [Concomitant]
     Active Substance: HYDROCODONE BITARTRATE\IBUPROFEN
  3. TRIAZOLAM. [Concomitant]
     Active Substance: TRIAZOLAM
  4. ALINIA [Concomitant]
     Active Substance: NITAZOXANIDE
  5. DOXYCYCLINE HYCLATE. [Concomitant]
     Active Substance: DOXYCYCLINE HYCLATE
  6. ZITHROMAX [Concomitant]
     Active Substance: AZITHROMYCIN DIHYDRATE
  7. TRIAZOLAM. [Concomitant]
     Active Substance: TRIAZOLAM
  8. XYREM [Suspect]
     Active Substance: SODIUM OXYBATE
     Indication: INSOMNIA
     Dosage: 2.25 G, BID
     Route: 048
     Dates: start: 201208, end: 201209
  9. XYREM [Suspect]
     Active Substance: SODIUM OXYBATE
     Dosage: DOAE ADJUSTMENTS
     Route: 048
  10. MOTRIN [Concomitant]
     Active Substance: IBUPROFEN
  11. VICODIN [Concomitant]
     Active Substance: ACETAMINOPHEN\HYDROCODONE BITARTRATE
  12. PLAQUENIL [Concomitant]
     Active Substance: HYDROXYCHLOROQUINE SULFATE
  13. PROPRANOLOL [Concomitant]
     Active Substance: PROPRANOLOL\PROPRANOLOL HYDROCHLORIDE
  14. DEPO-PROVERA [Concomitant]
     Active Substance: MEDROXYPROGESTERONE ACETATE
  15. AMBIEN [Concomitant]
     Active Substance: ZOLPIDEM TARTRATE
  16. MEPRON [Concomitant]
     Active Substance: ATOVAQUONE
  17. XYREM [Suspect]
     Active Substance: SODIUM OXYBATE
     Dosage: 4.5 G, BID
     Route: 048
     Dates: start: 201602
  18. ZITHROMAX [Concomitant]
     Active Substance: AZITHROMYCIN DIHYDRATE
  19. WELCHOL [Concomitant]
     Active Substance: COLESEVELAM HYDROCHLORIDE
  20. FLEXERIL [Concomitant]
     Active Substance: CYCLOBENZAPRINE HYDROCHLORIDE
  21. PROPRANOLOL [Concomitant]
     Active Substance: PROPRANOLOL\PROPRANOLOL HYDROCHLORIDE
  22. LYRICA [Concomitant]
     Active Substance: PREGABALIN
  23. NATURE-THROID [Concomitant]
     Active Substance: THYROID, PORCINE
  24. NYSTATIN. [Concomitant]
     Active Substance: NYSTATIN
  25. TEMAZEPAM. [Concomitant]
     Active Substance: TEMAZEPAM
  26. CYANOCOBALAMIN. [Concomitant]
     Active Substance: CYANOCOBALAMIN
  27. CLONAZEPAM. [Concomitant]
     Active Substance: CLONAZEPAM
  28. AMRIX [Concomitant]
     Active Substance: CYCLOBENZAPRINE HYDROCHLORIDE
  29. CEFDINIR. [Concomitant]
     Active Substance: CEFDINIR

REACTIONS (1)
  - Aphonia [Unknown]
